FAERS Safety Report 6641644-6 (Version None)
Quarter: 2010Q1

REPORT INFORMATION
  Report Type: 
  Country: None (occurrence: None)
  Receive Date: 20100317
  Receipt Date: 20100317
  Transmission Date: 20100710
  Serious: Yes (Other)
  Sender: FDA-Public Use
  Company Number: None

PATIENT
  Sex: Male

DRUGS (2)
  1. MEPERIDINE HYDROCHLORIDE INJ [Suspect]
     Indication: SEDATION
     Dosage: 50 MG ONCE IV
     Route: 042
     Dates: start: 20100301
  2. MIDAZOLAM HCL [Suspect]
     Indication: SEDATION
     Dosage: 6 MG ONCE IV
     Route: 042
     Dates: start: 20100301

REACTIONS (2)
  - INFUSION SITE REACTION [None]
  - VEIN DISCOLOURATION [None]
